FAERS Safety Report 7927861-3 (Version None)
Quarter: 2011Q4

REPORT INFORMATION
  Report Type: 
  Country: None (occurrence: None)
  Receive Date: 20111118
  Receipt Date: 20111118
  Transmission Date: 20120403
  Serious: Yes (Other)
  Sender: FDA-Public Use
  Company Number: None

PATIENT
  Sex: Female
  Weight: 77.11 kg

DRUGS (1)
  1. SOLODYN [Suspect]
     Indication: ACNE
     Dosage: 80 MG
     Route: 048
     Dates: start: 20110922, end: 20111025

REACTIONS (3)
  - BENIGN INTRACRANIAL HYPERTENSION [None]
  - VISUAL IMPAIRMENT [None]
  - CEREBRAL HAEMORRHAGE [None]
